FAERS Safety Report 23768771 (Version 2)
Quarter: 2024Q2

REPORT INFORMATION
  Report Type: Report from Study
  Country: EG (occurrence: EG)
  Receive Date: 20240422
  Receipt Date: 20240424
  Transmission Date: 20240716
  Serious: Yes (Other)
  Sender: FDA-Public Use
  Company Number: EG-002147023-NVSC2024EG082908

PATIENT
  Age: 46 Year
  Sex: Female

DRUGS (6)
  1. KISQALI [Suspect]
     Active Substance: RIBOCICLIB
     Indication: Breast cancer metastatic
     Dosage: 3 DOSAGE FORM, QD (TAKING 2 TABLETS TOGETHER THEN TAKE ONE TABLET AFTER TWO HOURS) FOR 21 DAYS AND O
     Route: 048
     Dates: start: 202401
  2. FEMARA [Suspect]
     Active Substance: LETROZOLE
     Indication: Breast cancer metastatic
     Dosage: 1 DOSAGE FORM, QD
     Route: 048
     Dates: start: 202401
  3. OSTEOCARE [Concomitant]
     Active Substance: CALCIUM\CHOLECALCIFEROL\MAGNESIUM\ZINC
     Indication: Calcium deficiency
     Dosage: 2 DOSAGE FORM, QD
     Route: 065
     Dates: start: 202401
  4. OSTEOCARE [Concomitant]
     Active Substance: CALCIUM\CHOLECALCIFEROL\MAGNESIUM\ZINC
     Dosage: 1 DOSAGE FORM, QD
     Route: 065
  5. GOSERELIN [Concomitant]
     Active Substance: GOSERELIN
     Indication: Menstrual disorder
     Dosage: 3.6 MG, Q4W (ONE INJECTION)
     Route: 065
     Dates: start: 202401
  6. GOSERELIN [Concomitant]
     Active Substance: GOSERELIN
     Dosage: 10.8 MG (ONE INJECTION ONCE EVERY 12 WEEKS)
     Route: 065

REACTIONS (6)
  - Decreased immune responsiveness [Recovering/Resolving]
  - Scratch [Not Recovered/Not Resolved]
  - Paraesthesia [Not Recovered/Not Resolved]
  - Insomnia [Not Recovered/Not Resolved]
  - Constipation [Recovered/Resolved]
  - Off label use [Not Recovered/Not Resolved]

NARRATIVE: CASE EVENT DATE: 20240101
